FAERS Safety Report 5420027-0 (Version None)
Quarter: 2007Q3

REPORT INFORMATION
  Report Type: 
  Country: None (occurrence: None)
  Receive Date: 20070815
  Receipt Date: 20070801
  Transmission Date: 20080115
  Serious: Yes (Hospitalization, Other)
  Sender: FDA-Public Use
  Company Number: 112024ISR

PATIENT
  Age: 36 Year
  Sex: Male

DRUGS (3)
  1. CISPLATIN [Suspect]
     Indication: TESTIS CANCER
     Dosage: (40 MG/M2, ON DAYS 1 TO 2)
  2. ETOPOSIDE [Suspect]
     Indication: TESTIS CANCER
     Dosage: (165 MG/M2, ON DAYS 1 TO 3)
  3. DEXAMETHASONE 0.5MG TAB [Suspect]
     Indication: TESTIS CANCER
     Dosage: (4 MG, ON DAY 2-5 OF EACH CYCLE); (8 MG (8MG,  ON DAY 1)
     Route: 048

REACTIONS (1)
  - OSTEONECROSIS [None]
